FAERS Safety Report 7425497-4 (Version None)
Quarter: 2011Q2

REPORT INFORMATION
  Report Type: 
  Country: None (occurrence: None)
  Receive Date: 20110412
  Receipt Date: 20110404
  Transmission Date: 20111010
  Serious: Yes (Death)
  Sender: FDA-Public Use
  Company Number: DSA_44249_2010

PATIENT
  Sex: Male

DRUGS (5)
  1. LAMICTAL [Concomitant]
  2. XENAZINE [Suspect]
     Indication: HUNTINGTON'S DISEASE
     Dosage: (25 MG, FREQUENCY UNKNOWN ORAL)
     Route: 048
  3. KLONOPIN [Concomitant]
  4. BACLOFEN [Concomitant]
  5. DEPAKOTE [Concomitant]

REACTIONS (6)
  - DYSARTHRIA [None]
  - CHOREOATHETOSIS [None]
  - HYPERTONIA [None]
  - HUNTINGTON'S DISEASE [None]
  - DYSPHAGIA [None]
  - MASKED FACIES [None]
